FAERS Safety Report 9703355 (Version 4)
Quarter: 2015Q2

REPORT INFORMATION
  Report Type: Report from Study
  Country: IN (occurrence: IN)
  Receive Date: 20131122
  Receipt Date: 20150626
  Transmission Date: 20150821
  Serious: Yes (Hospitalization)
  Sender: FDA-Public Use
  Company Number: PHHO2013IN012064

PATIENT
  Age: 74 Year
  Sex: Male
  Weight: 63 kg

DRUGS (40)
  1. CLOPIDOGREL [Concomitant]
     Active Substance: CLOPIDOGREL BISULFATE
     Indication: MYOCARDIAL ISCHAEMIA
     Dosage: 75 MG, ONCE/SINGLE, DAILY
     Route: 048
     Dates: start: 20111113, end: 20130915
  2. LEVOTHYROXINE SODIUM. [Concomitant]
     Active Substance: LEVOTHYROXINE SODIUM
     Indication: HYPOTHYROIDISM
     Dosage: 75 UG, ONCE/SINGLE, DAILY
     Route: 048
     Dates: start: 20130802, end: 20130915
  3. DUPHALAC [Concomitant]
     Active Substance: LACTULOSE
     Indication: CONSTIPATION PROPHYLAXIS
     Dosage: 30 ML, SOS
     Route: 048
     Dates: start: 20130905, end: 20130915
  4. LEVOSALBUTAMOL [Concomitant]
     Active Substance: LEVALBUTEROL
     Dosage: 1.25 MG, SOS
     Route: 055
     Dates: start: 20130916
  5. OLMESARTAN MEDOXOMIL. [Suspect]
     Active Substance: OLMESARTAN MEDOXOMIL
     Indication: CARDIAC FAILURE CONGESTIVE
     Dosage: 40 MG, ONCE/SINGLE, DAILY
     Route: 048
     Dates: start: 20130905, end: 20130915
  6. ASA [Concomitant]
     Active Substance: ASPIRIN
     Indication: MYOCARDIAL ISCHAEMIA
     Dosage: 150 MG, ONCE/SINGLE, DAILY
     Route: 048
     Dates: start: 20111113, end: 20130915
  7. ATORVASTATIN [Concomitant]
     Active Substance: ATORVASTATIN
     Indication: HYPERLIPIDAEMIA
     Dosage: 10 MG, ONCE/SINGLE, DAILY
     Route: 048
     Dates: start: 20120712, end: 20130915
  8. BEPLEX FORTE [Concomitant]
     Indication: SUPPLEMENTATION THERAPY
     Dosage: ONCE/SINGLE, DAILY
     Route: 048
     Dates: start: 20130901
  9. DUPHALAC [Concomitant]
     Active Substance: LACTULOSE
     Dosage: 30 ML, ONCE/SINGLE, DAILY
     Route: 048
     Dates: start: 20130917
  10. DUPHALAC [Concomitant]
     Active Substance: LACTULOSE
     Dosage: 30 ML, SOS
     Route: 048
     Dates: start: 20130919
  11. CLAVULANIC ACID [Concomitant]
     Active Substance: CLAVULANIC ACID
     Indication: BRONCHITIS
     Dosage: 125 MG, BID
     Route: 048
     Dates: start: 20130903, end: 20130915
  12. BETAHISTINE HYDROCHLORIDE [Concomitant]
     Active Substance: BETAHISTINE HYDROCHLORIDE
     Dosage: 8 MG, BID
     Route: 048
     Dates: start: 20131004
  13. ISOSORBIDE DINITRATE,PINDOLOL [Suspect]
     Active Substance: ISOSORBIDE DINITRATE\PINDOLOL
     Indication: MYOCARDIAL ISCHAEMIA
     Dosage: 5 MG, TID
     Route: 048
     Dates: start: 20130903, end: 20130915
  14. ALPRAZOLAM. [Concomitant]
     Active Substance: ALPRAZOLAM
     Indication: INSOMNIA
     Dosage: 0.25 MG, SOS
     Route: 048
     Dates: start: 20130905, end: 20130915
  15. BLINDED NO TREATMENT RECEIVED [Suspect]
     Active Substance: UNSPECIFIED INGREDIENT
     Indication: CARDIAC FAILURE
     Dosage: CODE NOT BROKEN
     Route: 048
     Dates: start: 20100426, end: 20130915
  16. IPRATROPIUM BROMIDE. [Concomitant]
     Active Substance: IPRATROPIUM BROMIDE
     Dosage: 500 UG, SOS
     Route: 055
     Dates: start: 20130916
  17. DUPHALAC [Concomitant]
     Active Substance: LACTULOSE
     Dosage: 30 ML, BID
     Route: 048
     Dates: start: 20130916
  18. BLINDED ENALAPRIL [Suspect]
     Active Substance: ENALAPRIL
     Indication: CARDIAC FAILURE
     Dosage: CODE NOT BROKEN
     Route: 048
     Dates: start: 20100426, end: 20130915
  19. BLINDED ALISKIREN [Suspect]
     Active Substance: ALISKIREN
     Dosage: CODE NOT BROKEN
     Route: 048
     Dates: start: 20131217
  20. BLINDED NO TREATMENT RECEIVED [Suspect]
     Active Substance: UNSPECIFIED INGREDIENT
     Dosage: CODE NOT BROKEN
     Route: 048
     Dates: start: 20131217
  21. TORSEMIDE. [Suspect]
     Active Substance: TORSEMIDE
     Indication: CARDIAC FAILURE CHRONIC
     Dosage: 40 MG, ONCE/SINGLE, DAILY
     Route: 048
     Dates: start: 20130905, end: 20130915
  22. AMOXICILLIN. [Concomitant]
     Active Substance: AMOXICILLIN
     Indication: BRONCHITIS
     Dosage: 500 MG, BID
     Route: 048
     Dates: start: 20130903, end: 20130915
  23. ACEBROFYLLINE [Concomitant]
     Indication: BRONCHITIS
     Dosage: 100 MG, ONCE/SINGLE, DAILY
     Route: 048
     Dates: start: 20130903, end: 20130915
  24. LEVOTHYROXINE SODIUM. [Concomitant]
     Active Substance: LEVOTHYROXINE SODIUM
     Dosage: 50 UG, ONCE/SINGLE, DAILY
     Route: 048
     Dates: start: 20131115
  25. ALPRAZOLAM. [Concomitant]
     Active Substance: ALPRAZOLAM
     Dosage: 0.25 MG, ONCE/SINGLE, DAILY
     Route: 048
     Dates: start: 20130915
  26. FUROSEMIDE. [Concomitant]
     Active Substance: FUROSEMIDE
     Indication: PROPHYLAXIS
     Dosage: 20 MG, SOS
     Route: 048
     Dates: start: 20131115
  27. LEVOSALBUTAMOL [Concomitant]
     Active Substance: LEVALBUTEROL
     Indication: BRONCHITIS
     Dosage: 1.25 MG, TID
     Route: 055
     Dates: start: 20130905, end: 20130915
  28. ASA [Concomitant]
     Active Substance: ASPIRIN
     Dosage: 75 MG, ONCE/SINGLE, DAILY
     Route: 048
     Dates: start: 20131217
  29. CLOPIDOGREL [Concomitant]
     Active Substance: CLOPIDOGREL BISULFATE
     Dosage: UNK
     Route: 065
     Dates: start: 20131217
  30. CEFIXIME. [Concomitant]
     Active Substance: CEFIXIME
     Indication: PROPHYLAXIS
     Dosage: 200 MG, BID
     Route: 048
     Dates: start: 20130916
  31. KESOL [Concomitant]
     Indication: HYPOKALAEMIA
     Dosage: 1 DF, STAT
     Route: 042
     Dates: start: 20130916
  32. BETAHISTINE HYDROCHLORIDE [Concomitant]
     Active Substance: BETAHISTINE HYDROCHLORIDE
     Indication: VERTIGO
     Dosage: 16 MG, BID
     Route: 048
     Dates: start: 20130916
  33. BLINDED ENALAPRIL [Suspect]
     Active Substance: ENALAPRIL
     Dosage: CODE NOT BROKEN
     Route: 048
     Dates: start: 20131217
  34. ISOSORBIDE DINITRATE,PINDOLOL [Suspect]
     Active Substance: ISOSORBIDE DINITRATE\PINDOLOL
     Dosage: 5 MG, SOS
     Route: 048
     Dates: start: 20131004
  35. SPIRONOLACTONE. [Suspect]
     Active Substance: SPIRONOLACTONE
     Indication: CARDIAC FAILURE CONGESTIVE
     Dosage: 50 MG, ONCE/SINGLE, DAILY
     Route: 048
     Dates: start: 20130902, end: 20130915
  36. IPRATROPIUM BROMIDE. [Concomitant]
     Active Substance: IPRATROPIUM BROMIDE
     Indication: BRONCHITIS
     Dosage: 500 UG, TID
     Route: 055
     Dates: start: 20130905, end: 20130915
  37. BLINDED ALISKIREN [Suspect]
     Active Substance: ALISKIREN
     Indication: CARDIAC FAILURE
     Dosage: CODE NOT BROKEN
     Route: 048
     Dates: start: 20100426, end: 20130915
  38. SPIRONOLACTONE. [Suspect]
     Active Substance: SPIRONOLACTONE
     Dosage: 25 MG, BID
     Route: 048
     Dates: start: 20130918, end: 20131115
  39. PANTOPRAZOLE [Concomitant]
     Active Substance: PANTOPRAZOLE SODIUM
     Indication: PROPHYLAXIS
     Dosage: 40 MG, ONCE/SINGLE, DAILY
     Route: 048
     Dates: start: 20130901
  40. ALPRAZOLAM. [Concomitant]
     Active Substance: ALPRAZOLAM
     Dosage: 0.25 MG, SOS
     Route: 048
     Dates: start: 20130919

REACTIONS (2)
  - Orthostatic hypotension [Recovered/Resolved]
  - Electrolyte imbalance [Recovered/Resolved]

NARRATIVE: CASE EVENT DATE: 20130912
